FAERS Safety Report 4614097-7 (Version None)
Quarter: 2005Q1

REPORT INFORMATION
  Report Type: 
  Country: None (occurrence: None)
  Receive Date: 20050315
  Receipt Date: 20050302
  Transmission Date: 20050727
  Serious: Yes (Death)
  Sender: FDA-Public Use
  Company Number: 212805

PATIENT
  Age: 62 Year
  Sex: Male

DRUGS (7)
  1. AVASTIN [Suspect]
     Indication: COLORECTAL CANCER METASTATIC
     Dosage: 375 MG, INTRAVENOUS
     Route: 042
     Dates: start: 20050110, end: 20050209
  2. ERLOTINIB (ERLOTINIB) TABLET, 150 MG [Suspect]
     Indication: COLORECTAL CANCER METASTATIC
     Dosage: 150 MG, QD, ORAL
     Route: 048
     Dates: start: 20050110, end: 20050222
  3. CLONIDINE [Concomitant]
  4. METHYLDOPA [Concomitant]
  5. TOPROL-XL [Concomitant]
  6. VERAPAMIL [Concomitant]
  7. COUMADIN [Concomitant]

REACTIONS (11)
  - CATHETER RELATED INFECTION [None]
  - CATHETER SITE DISCHARGE [None]
  - DEHYDRATION [None]
  - DIARRHOEA [None]
  - FALL [None]
  - HAEMATOCRIT DECREASED [None]
  - HAEMORRHAGE [None]
  - NAUSEA [None]
  - PLATELET COUNT DECREASED [None]
  - RENAL FAILURE [None]
  - VOMITING [None]
